FAERS Safety Report 12666842 (Version 1)
Quarter: 2016Q3

REPORT INFORMATION
  Report Type: Spontaneous
  Country: US (occurrence: None)
  Receive Date: 20160818
  Receipt Date: 20160818
  Transmission Date: 20161109
  Serious: Yes (Other)
  Sender: FDA-Public Use
  Company Number: None

PATIENT
  Age: 76 Year
  Sex: Male
  Weight: 77.11 kg

DRUGS (1)
  1. AMIODARONE, 200 MG [Suspect]
     Active Substance: AMIODARONE

REACTIONS (6)
  - Diplopia [None]
  - Constipation [None]
  - Dyspnoea [None]
  - Vision blurred [None]
  - Fatigue [None]
  - Dry eye [None]

NARRATIVE: CASE EVENT DATE: 20160817
